FAERS Safety Report 7867806-8 (Version None)
Quarter: 2011Q4

REPORT INFORMATION
  Report Type: 
  Country: None (occurrence: None)
  Receive Date: 20111028
  Receipt Date: 20111025
  Transmission Date: 20120403
  Serious: Yes (Life-Threatening, Hospitalization, Other)
  Sender: FDA-Public Use
  Company Number: US-BAYER-2011-104483

PATIENT

DRUGS (1)
  1. AVELOX [Suspect]

REACTIONS (3)
  - TACHYCARDIA [None]
  - HYPOTENSION [None]
  - BRONCHOSPASM [None]
